FAERS Safety Report 15936503 (Version 1)
Quarter: 2019Q1

REPORT INFORMATION
  Report Type: Spontaneous
  Country: US (occurrence: US)
  Receive Date: 20190207
  Receipt Date: 20190207
  Transmission Date: 20190417
  Serious: Yes (Disabling)
  Sender: FDA-Public Use
  Company Number: None

PATIENT
  Age: 48 Year
  Sex: Female
  Weight: 65.25 kg

DRUGS (2)
  1. LEVAQUIN [Suspect]
     Active Substance: LEVOFLOXACIN
     Indication: LUNG INFECTION
     Dosage: ?          OTHER FREQUENCY:INTRAVENOUS DOSING;?
     Route: 042
     Dates: start: 20160420, end: 20160422
  2. LEVAQUIN [Suspect]
     Active Substance: LEVOFLOXACIN
     Indication: PNEUMONIA
     Dosage: ?          OTHER FREQUENCY:INTRAVENOUS DOSING;?
     Route: 042
     Dates: start: 20160420, end: 20160422

REACTIONS (22)
  - Helplessness [None]
  - Pain [None]
  - Pruritus [None]
  - Hypoaesthesia [None]
  - Flushing [None]
  - Interstitial lung disease [None]
  - Joint stiffness [None]
  - Influenza like illness [None]
  - Dysstasia [None]
  - Suicidal ideation [None]
  - Rash [None]
  - Loss of personal independence in daily activities [None]
  - Toxicity to various agents [None]
  - Hypoaesthesia oral [None]
  - Infusion related reaction [None]
  - Peripheral sensorimotor neuropathy [None]
  - Arthralgia [None]
  - Hyperaesthesia [None]
  - Drug interaction [None]
  - Fibromyalgia [None]
  - Tendon disorder [None]
  - Neuropathy peripheral [None]

NARRATIVE: CASE EVENT DATE: 20160421
